FAERS Safety Report 18495352 (Version 1)
Quarter: 2020Q4

REPORT INFORMATION
  Report Type: Spontaneous
  Country: US (occurrence: US)
  Receive Date: 20201112
  Receipt Date: 20201112
  Transmission Date: 20210114
  Serious: Yes (Hospitalization)
  Sender: FDA-Public Use
  Company Number: None

PATIENT
  Age: 68 Year
  Sex: Male
  Weight: 104.7 kg

DRUGS (2)
  1. AMLODIPINE [Concomitant]
     Active Substance: AMLODIPINE BESYLATE
  2. PEMBROLIZUMAB (MK-3475) [Suspect]
     Active Substance: PEMBROLIZUMAB

REACTIONS (14)
  - Acute kidney injury [None]
  - Nausea [None]
  - Hyperhidrosis [None]
  - Gastrointestinal motility disorder [None]
  - Hypopituitarism [None]
  - Dehydration [None]
  - Adrenal insufficiency [None]
  - Hypotension [None]
  - Vomiting [None]
  - Pain [None]
  - Hypophagia [None]
  - Tachycardia [None]
  - Dizziness [None]
  - Hypophysitis [None]

NARRATIVE: CASE EVENT DATE: 20201007
